FAERS Safety Report 22644502 (Version 1)
Quarter: 2023Q2

REPORT INFORMATION
  Report Type: Spontaneous
  Country: US (occurrence: US)
  Receive Date: 20230627
  Receipt Date: 20230627
  Transmission Date: 20230722
  Serious: Yes (Other)
  Sender: FDA-Public Use
  Company Number: US-002147023-NVSC2023US144845

PATIENT
  Sex: Male
  Weight: 51 kg

DRUGS (1)
  1. KYMRIAH [Suspect]
     Active Substance: TISAGENLECLEUCEL
     Indication: Acute lymphocytic leukaemia
     Dosage: 1.4E8 CAR-POSITIVE VIABLE T-CELLS, ONCE/SINGLE
     Route: 042
     Dates: start: 20230518

REACTIONS (1)
  - Plasma cell myeloma [Unknown]
